FAERS Safety Report 18714161 (Version 1)
Quarter: 2021Q1

REPORT INFORMATION
  Report Type: Spontaneous
  Country: US (occurrence: US)
  Receive Date: 20210107
  Receipt Date: 20210107
  Transmission Date: 20210419
  Serious: No
  Sender: FDA-Public Use
  Company Number: US-PFIZER INC-2020150105

PATIENT
  Age: 53 Year
  Sex: Female

DRUGS (4)
  1. VFEND [Suspect]
     Active Substance: VORICONAZOLE
     Indication: SELECTIVE IGG SUBCLASS DEFICIENCY
  2. VFEND [Suspect]
     Active Substance: VORICONAZOLE
     Indication: IMMUNE SYSTEM DISORDER
     Dosage: 200 MG, 3 TIMES WEEKLY
     Route: 048
  3. VFEND [Suspect]
     Active Substance: VORICONAZOLE
     Indication: BLOOD IMMUNOGLOBULIN G DECREASED
     Dosage: 100 MG, 3 TIMES A WEEK
  4. VFEND [Suspect]
     Active Substance: VORICONAZOLE
     Indication: HYPOGAMMAGLOBULINAEMIA
     Dosage: 200 MG, 2X/WEEK
     Route: 048

REACTIONS (2)
  - Off label use [Unknown]
  - Illness [Unknown]
